FAERS Safety Report 24388460 (Version 2)
Quarter: 2024Q4

REPORT INFORMATION
  Report Type: Spontaneous
  Country: CN (occurrence: CN)
  Receive Date: 20241002
  Receipt Date: 20241010
  Transmission Date: 20250114
  Serious: Yes (Other)
  Sender: JOHNSON AND JOHNSON
  Company Number: CN-JNJFOC-20240969815

PATIENT

DRUGS (1)
  1. TOPAMAX [Suspect]
     Active Substance: TOPIRAMATE
     Indication: Epilepsy
     Dosage: INITIAL DOSE WAS 1 TO 3 MGKG-1 D-1?INCREASED, WITH THE MAXIMUM DOSE OF 5 TO 8 MGKG-1 D-1 , FOR C
     Route: 048

REACTIONS (7)
  - Unresponsive to stimuli [Unknown]
  - Therapeutic response decreased [Unknown]
  - Fatigue [Unknown]
  - Somnolence [Unknown]
  - Dizziness [Unknown]
  - Rash [Unknown]
  - Product use issue [Unknown]
